FAERS Safety Report 8870007 (Version 1)
Quarter: 2012Q4

REPORT INFORMATION
  Report Type: 
  Country: US (occurrence: US)
  Receive Date: 20121028
  Receipt Date: 20121028
  Transmission Date: 20130627
  Serious: No
  Sender: FDA-Public Use
  Company Number: US-009507513-1210USA002170

PATIENT
  Sex: Female

DRUGS (1)
  1. FOSAMAX [Suspect]

REACTIONS (4)
  - Jaw disorder [Unknown]
  - Photosensitivity reaction [Unknown]
  - Bone disorder [Unknown]
  - Bone density decreased [Unknown]
